FAERS Safety Report 6408837-4 (Version None)
Quarter: 2009Q4

REPORT INFORMATION
  Report Type: 
  Country: None (occurrence: None)
  Receive Date: 20091021
  Receipt Date: 20091012
  Transmission Date: 20100525
  Serious: Yes (Hospitalization)
  Sender: FDA-Public Use
  Company Number: KR-ELI_LILLY_AND_COMPANY-KR200910002688

PATIENT
  Age: 67 Year
  Sex: Female

DRUGS (2)
  1. HUMALOG MIX 75/25 [Suspect]
     Indication: DIABETES MELLITUS
     Dosage: UNK, UNKNOWN
  2. HUMALOG MIX 75/25 [Suspect]
     Dosage: 22 U, DAILY (1/D) (12U IN THE AM AND 10U IN THE PM)

REACTIONS (4)
  - ASTHENIA [None]
  - DYSPNOEA [None]
  - HOSPITALISATION [None]
  - HYPOPHAGIA [None]
